FAERS Safety Report 6271569-X (Version None)
Quarter: 2009Q3

REPORT INFORMATION
  Report Type: 
  Country: None (occurrence: None)
  Receive Date: 20090717
  Receipt Date: 20090713
  Transmission Date: 20100115
  Serious: Yes (Death)
  Sender: FDA-Public Use
  Company Number: US-TYCO HEALTHCARE/MALLINCKRODT-T200901125

PATIENT
  Sex: Male

DRUGS (3)
  1. METHADOSE [Suspect]
  2. AMBIEN [Concomitant]
     Indication: INSOMNIA
  3. ESZOPICLONE [Concomitant]

REACTIONS (2)
  - ACCIDENTAL OVERDOSE [None]
  - DRUG DIVERSION [None]
